FAERS Safety Report 10210490 (Version 1)
Quarter: 2014Q2

REPORT INFORMATION
  Report Type: Spontaneous
  Country: PL (occurrence: PL)
  Receive Date: 20140602
  Receipt Date: 20140602
  Transmission Date: 20141212
  Serious: Yes (Other)
  Sender: FDA-Public Use
  Company Number: PL-WATSON-2014-11246

PATIENT
  Age: 67 Year
  Sex: Female
  Weight: 73 kg

DRUGS (1)
  1. CARBOPLATIN (UNKNOWN) [Suspect]
     Indication: OVARIAN CANCER
     Dosage: UNK, 6 MG/ML MIN
     Route: 042
     Dates: start: 20140217, end: 20140217

REACTIONS (3)
  - Abdominal pain lower [Unknown]
  - Asthenia [Unknown]
  - Nausea [Unknown]
